FAERS Safety Report 9526733 (Version 2)
Quarter: 2013Q4

REPORT INFORMATION
  Report Type: Spontaneous
  Country: US (occurrence: US)
  Receive Date: 20130916
  Receipt Date: 20131105
  Transmission Date: 20140711
  Serious: Yes (Hospitalization, Other)
  Sender: FDA-Public Use
  Company Number: PHHY2013US101627

PATIENT
  Age: 49 Year
  Sex: Male

DRUGS (7)
  1. MORPHINE [Suspect]
     Dosage: 20 MG, DAILY
     Route: 037
  2. MS CONTIN [Concomitant]
     Indication: PAIN
     Dosage: 200 MG, EVERY 6 HOURS
     Route: 048
  3. DILAUDID [Concomitant]
     Indication: PAIN
     Dosage: 8 MG, EVERY 6 HOURS
     Route: 048
  4. BACLOFEN INTRATHECAL [Suspect]
     Indication: PAIN
     Dosage: 100 UG/DAY
     Route: 037
     Dates: start: 20110425
  5. CLONIDINE [Suspect]
     Indication: PAIN
     Dosage: 1000 UG/DAY
     Route: 037
  6. MORPHINE [Suspect]
     Dosage: 20 MG, DAILY
     Route: 037
  7. MORPHINE [Suspect]
     Dosage: 10 MG, DAILY
     Route: 037

REACTIONS (7)
  - Feeling abnormal [Unknown]
  - Respiratory disorder [Unknown]
  - Incorrect route of drug administration [Unknown]
  - Respiratory depression [Unknown]
  - Diplopia [Unknown]
  - Dizziness [Unknown]
  - Overdose [Unknown]
